FAERS Safety Report 26153582 (Version 1)
Quarter: 2025Q4

REPORT INFORMATION
  Report Type: Spontaneous
  Country: GB (occurrence: GB)
  Receive Date: 20251214
  Receipt Date: 20251214
  Transmission Date: 20260118
  Serious: Yes (Other)
  Sender: SANDOZ
  Company Number: None

PATIENT
  Age: 36 Year
  Sex: Female
  Weight: 95 kg

DRUGS (2)
  1. AMOXICILLIN [Suspect]
     Active Substance: AMOXICILLIN
     Indication: Cough
     Dosage: ACUTE COUGH: TAKE ONE THREE TIMES A DAY FOR 5 DAYS
     Route: 065
     Dates: start: 20251209
  2. BECLOMETHASONE\FORMOTEROL [Concomitant]
     Active Substance: BECLOMETHASONE\FORMOTEROL
     Indication: Product used for unknown indication
     Dosage: (MART) INHALE ONE OR TWO PUFFS TWICE A DAY AND ...
     Route: 065
     Dates: start: 20241227

REACTIONS (3)
  - Swelling face [Recovering/Resolving]
  - Rash [Recovering/Resolving]
  - Vomiting [Recovering/Resolving]
